FAERS Safety Report 10905760 (Version 1)
Quarter: 2015Q1

REPORT INFORMATION
  Report Type: Spontaneous
  Country: US (occurrence: US)
  Receive Date: 20150311
  Receipt Date: 20150311
  Transmission Date: 20150721
  Serious: No
  Sender: FDA-Public Use
  Company Number: US-BAUSCH-BL-2014-005718

PATIENT
  Sex: Female

DRUGS (2)
  1. AZITHROMYCIN [Concomitant]
     Active Substance: AZITHROMYCIN ANHYDROUS
  2. TUSSICAPS [Suspect]
     Active Substance: CHLORPHENIRAMINE\CHLORPHENIRAMINE MALEATE\HYDROCODONE\HYDROCODONE BITARTRATE
     Indication: NASOPHARYNGITIS
     Dosage: 1 CAPSULE, ONE TIME
     Route: 048
     Dates: start: 20140102, end: 20140102

REACTIONS (4)
  - Headache [Recovered/Resolved]
  - Dizziness [Recovered/Resolved]
  - Chest discomfort [Recovered/Resolved]
  - Syncope [Recovered/Resolved]
